FAERS Safety Report 10376320 (Version 1)
Quarter: 2014Q3

REPORT INFORMATION
  Report Type: Spontaneous
  Country: GB (occurrence: None)
  Receive Date: 20140801
  Receipt Date: 20140801
  Transmission Date: 20150326
  Serious: Yes (Other)
  Sender: FDA-Public Use
  Company Number: AUR-APL-2014-06127

PATIENT
  Age: 65 Year
  Sex: Female

DRUGS (8)
  1. GABAPENTIN. [Suspect]
     Active Substance: GABAPENTIN
     Indication: NEURALGIA
  2. LITHIUM [Suspect]
     Active Substance: LITHIUM CARBONATE
     Indication: NEURALGIA
  3. INDOMETHACIN. [Suspect]
     Active Substance: INDOMETHACIN
     Indication: NEURALGIA
  4. VALPROATE SODIUM. [Suspect]
     Active Substance: VALPROATE SODIUM
     Indication: NEURALGIA
  5. MELATONIN [Suspect]
     Active Substance: MELATONIN
     Indication: NEURALGIA
  6. PREGABALIN. [Suspect]
     Active Substance: PREGABALIN
     Indication: NEURALGIA
  7. CARBAMAZEPINE. [Suspect]
     Active Substance: CARBAMAZEPINE
     Indication: NEURALGIA
  8. AMITRIPTYLINE [Suspect]
     Active Substance: AMITRIPTYLINE
     Indication: NEURALGIA

REACTIONS (1)
  - Drug ineffective [None]
